FAERS Safety Report 9000191 (Version 1)
Quarter: 2013Q1

REPORT INFORMATION
  Report Type: Spontaneous
  Country: DE (occurrence: DE)
  Receive Date: 20130102
  Receipt Date: 20130102
  Transmission Date: 20140127
  Serious: Yes (Hospitalization)
  Sender: FDA-Public Use
  Company Number: DE-JNJFOC-20121209791

PATIENT
  Age: 18 Year
  Sex: Male

DRUGS (2)
  1. CONCERTA [Suspect]
     Indication: ATTENTION DEFICIT/HYPERACTIVITY DISORDER
     Route: 048
     Dates: start: 2007, end: 2012
  2. PURETHAL [Suspect]
     Indication: SEASONAL ALLERGY
     Route: 058
     Dates: start: 201001, end: 201205

REACTIONS (2)
  - Papilloedema [Unknown]
  - Visual acuity reduced [Unknown]
